FAERS Safety Report 14872331 (Version 1)
Quarter: 2018Q2

REPORT INFORMATION
  Report Type: Report from Study
  Country: DE (occurrence: DE)
  Receive Date: 20180509
  Receipt Date: 20180509
  Transmission Date: 20180711
  Serious: Yes (Other)
  Sender: FDA-Public Use
  Company Number: DE-B. BRAUN MEDICAL INC.-2047513

PATIENT
  Age: 85 Year
  Sex: Female

DRUGS (21)
  1. HEPARIN SODIUM AND DEXTROSE [Suspect]
     Active Substance: HEPARIN SODIUM
     Indication: THROMBOSIS PROPHYLAXIS
     Route: 058
     Dates: start: 19950629
  2. ACETYLSALICYLIC ACID [Suspect]
     Active Substance: ASPIRIN
     Route: 048
     Dates: start: 19950629
  3. PIROXICAM. [Suspect]
     Active Substance: PIROXICAM
     Route: 030
     Dates: start: 19950620, end: 19950620
  4. PIRETANIDE [Suspect]
     Active Substance: PIRETANIDE
     Route: 048
     Dates: start: 19950629
  5. DEXAMETHASONE SODIUM PHOSPHATE. [Suspect]
     Active Substance: DEXAMETHASONE SODIUM PHOSPHATE
     Route: 030
     Dates: start: 19950627, end: 19950627
  6. PARACETAMOL [Concomitant]
     Active Substance: ACETAMINOPHEN
     Route: 048
     Dates: start: 19950630, end: 19950630
  7. CAPTOPRIL. [Suspect]
     Active Substance: CAPTOPRIL
     Route: 048
     Dates: start: 19950629
  8. INSULIN HUMAN [Concomitant]
     Active Substance: INSULIN HUMAN
     Route: 058
  9. AMOXICILLIN. [Concomitant]
     Active Substance: AMOXICILLIN
     Route: 048
     Dates: start: 19950630, end: 19950701
  10. METOCLOPRAMIDE. [Concomitant]
     Active Substance: METOCLOPRAMIDE
     Route: 042
     Dates: start: 19950630, end: 19950630
  11. FUROSEMIDE. [Suspect]
     Active Substance: FUROSEMIDE
     Route: 048
     Dates: start: 19950629
  12. SACCHAROMYCES [Suspect]
     Active Substance: SACCHAROMYCES CEREVISIAE
     Route: 048
     Dates: start: 19950629, end: 19950629
  13. ACETYLDIGOXIN [Concomitant]
     Active Substance: .BETA.-ACETYLDIGOXIN
     Route: 048
  14. PERENTEROL [Suspect]
     Active Substance: SACCHAROMYCES CEREVISIAE
     Route: 048
     Dates: start: 19950630, end: 19950701
  15. KALINOR [Concomitant]
     Route: 048
     Dates: start: 19950629
  16. LOPERAMIDE HCL [Suspect]
     Active Substance: LOPERAMIDE HYDROCHLORIDE
     Route: 048
     Dates: start: 19950627, end: 19950629
  17. BACTRIM [Suspect]
     Active Substance: SULFAMETHOXAZOLE\TRIMETHOPRIM
     Route: 048
     Dates: start: 19950630, end: 19950630
  18. CYANOCOBALAMIN. [Concomitant]
     Active Substance: CYANOCOBALAMIN
     Route: 030
  19. ACARBOSE. [Concomitant]
     Active Substance: ACARBOSE
     Route: 048
  20. OMEPRAZOLE. [Concomitant]
     Active Substance: OMEPRAZOLE
     Route: 048
     Dates: start: 19950630
  21. CAPTOPRIL. [Concomitant]
     Active Substance: CAPTOPRIL
     Route: 048
     Dates: start: 19950629

REACTIONS (2)
  - Stevens-Johnson syndrome [Recovering/Resolving]
  - Gastrointestinal disorder [Unknown]

NARRATIVE: CASE EVENT DATE: 19950630
